FAERS Safety Report 10359026 (Version 1)
Quarter: 2014Q3

REPORT INFORMATION
  Report Type: Spontaneous
  Country: FR (occurrence: FR)
  Receive Date: 20140804
  Receipt Date: 20140804
  Transmission Date: 20150326
  Serious: Yes (Hospitalization)
  Sender: FDA-Public Use
  Company Number: FR-ROCHE-1444810

PATIENT
  Age: 67 Year
  Sex: Female

DRUGS (10)
  1. XOLAIR [Suspect]
     Active Substance: OMALIZUMAB
     Route: 058
     Dates: start: 20140627, end: 20140627
  2. XARELTO [Concomitant]
     Active Substance: RIVAROXABAN
  3. IPRATROPIUM [Concomitant]
     Active Substance: IPRATROPIUM
  4. SPECIAFOLDINE [Concomitant]
     Active Substance: FOLIC ACID
  5. XOLAIR [Suspect]
     Active Substance: OMALIZUMAB
     Indication: ASTHMA
     Route: 058
     Dates: start: 2011
  6. RULID [Suspect]
     Active Substance: ROXITHROMYCIN
     Indication: PRODUCT USED FOR UNKNOWN INDICATION
     Route: 065
  7. PANTOPRAZOLE [Concomitant]
     Active Substance: PANTOPRAZOLE SODIUM
  8. PROCORALAN [Concomitant]
     Active Substance: IVABRADINE
  9. TERBUTALINE [Concomitant]
     Active Substance: TERBUTALINE
  10. VITAMIN B6 [Concomitant]
     Active Substance: PYRIDOXINE HYDROCHLORIDE

REACTIONS (3)
  - Eosinophilia [Recovered/Resolved]
  - Myocarditis [Not Recovered/Not Resolved]
  - Pulmonary vasculitis [Not Recovered/Not Resolved]

NARRATIVE: CASE EVENT DATE: 20140620
